FAERS Safety Report 8713167 (Version 5)
Quarter: 2012Q4

REPORT INFORMATION
  Report Type: 
  Country: TH (occurrence: TH)
  Receive Date: 20120808
  Receipt Date: 20120907
  Transmission Date: 20130627
  Serious: Yes (Death, Other)
  Sender: FDA-Public Use
  Company Number: TH-PFIZER INC-2012188731

PATIENT
  Age: 85 Year
  Sex: Female

DRUGS (8)
  1. DYNASTAT [Suspect]
     Indication: HEADACHE
     Dosage: Injection, 1 Dose
     Dates: start: 20120728, end: 20120728
  2. DYNASTAT [Suspect]
     Dosage: Injection, 1 Dose
     Dates: start: 20120729
  3. RELPAX [Suspect]
     Indication: HEADACHE
     Dosage: 40 mg, as needed
     Route: 048
     Dates: start: 20120729
  4. TRAMAL [Suspect]
     Indication: HEADACHE
     Dosage: Injection, 1 Dose
     Dates: start: 20120729
  5. BELLERGAL [Suspect]
     Indication: HEADACHE
     Dosage: UNK
     Dates: start: 20120729
  6. KETOROLAC [Suspect]
     Indication: HEADACHE
     Dosage: Injection, 1 Dose
     Dates: start: 20120729
  7. TRYPTANOL [Suspect]
     Indication: HEADACHE
     Dosage: UNK
  8. SIBELIUM [Suspect]
     Indication: HEADACHE
     Dosage: UNK

REACTIONS (5)
  - Myocardial infarction [Fatal]
  - Cardiac arrest [Fatal]
  - Blood pressure decreased [Fatal]
  - Nausea [Unknown]
  - Drug ineffective [Unknown]
